FAERS Safety Report 8721016 (Version 2)
Quarter: 2013Q3

REPORT INFORMATION
  Report Type: Spontaneous
  Country: US (occurrence: US)
  Receive Date: 20120813
  Receipt Date: 20130718
  Transmission Date: 20140515
  Serious: Yes (Hospitalization)
  Sender: FDA-Public Use
  Company Number: US-UCBSA-063337

PATIENT
  Age: 79 Year
  Sex: Female
  Weight: 87 kg

DRUGS (8)
  1. VIMPAT [Suspect]
     Indication: CONVULSION
     Route: 048
     Dates: start: 2012, end: 201206
  2. VIMPAT [Suspect]
     Indication: CONVULSION
     Dosage: 100 MG
     Route: 048
     Dates: end: 2012
  3. VIMPAT [Suspect]
     Indication: CONVULSION
     Dosage: UNKNOWN DOSE
     Route: 048
  4. KEPPRA [Suspect]
     Indication: EPILEPSY
     Dosage: UNKNOWN DOSE
  5. LEVETIRACETAM [Suspect]
     Dosage: 500 MG TABLET, 1/2 EACH NIGHT FOR 2 WEEKS
     Route: 048
     Dates: start: 2012, end: 2012
  6. LEVETIRACETAM [Suspect]
     Dosage: 500 MG TABLET, 1/2 TABLET FOR 2 WEEKS
     Route: 048
     Dates: start: 2012, end: 2012
  7. LEVETIRACETAM [Suspect]
     Dates: start: 2012, end: 201206
  8. LEVETIRACETAM [Suspect]

REACTIONS (7)
  - Epilepsy [Recovering/Resolving]
  - Surgery [Unknown]
  - Convulsion [Unknown]
  - Hallucination, auditory [Recovering/Resolving]
  - Somnolence [Not Recovered/Not Resolved]
  - Fatigue [Not Recovered/Not Resolved]
  - Rash [Not Recovered/Not Resolved]
